FAERS Safety Report 8493520-4 (Version None)
Quarter: 2012Q2

REPORT INFORMATION
  Report Type: 
  Country: None (occurrence: None)
  Receive Date: 20120402
  Receipt Date: 20081016
  Transmission Date: 20120825
  Serious: Yes (Other)
  Sender: FDA-Public Use
  Company Number: PHEH2008US09316

PATIENT
  Age: 94 Year
  Sex: Female

DRUGS (6)
  1. DIAZIDE (GLICLAZIDE) [Concomitant]
  2. SODIUM CHLORIDE [Concomitant]
  3. EXFORGE [Suspect]
     Dosage: 5 MG AML, 160MG VAL, BID
     Dates: start: 20070601
  4. TOPROL-XL [Concomitant]
  5. LIPITOR [Concomitant]
  6. METHYLDOPA [Concomitant]

REACTIONS (7)
  - COUGH [None]
  - BLOOD PRESSURE DIASTOLIC DECREASED [None]
  - WHEEZING [None]
  - DIZZINESS [None]
  - NASAL CONGESTION [None]
  - OROPHARYNGEAL PAIN [None]
  - EAR DISORDER [None]
